FAERS Safety Report 5614478-9 (Version None)
Quarter: 2008Q1

REPORT INFORMATION
  Report Type: 
  Country: None (occurrence: None)
  Receive Date: 20080111
  Receipt Date: 20071005
  Transmission Date: 20080703
  Serious: Yes (Other)
  Sender: FDA-Public Use
  Company Number: HQWYE766814OCT04

PATIENT
  Age: 59 Year
  Sex: Female
  Weight: 59.02 kg

DRUGS (4)
  1. PREMPRO [Suspect]
     Indication: MENOPAUSE
     Dosage: ORAL
     Route: 048
     Dates: start: 19970306, end: 20010220
  2. PREMARIN [Suspect]
     Indication: MENOPAUSE
     Dosage: ORAL
     Route: 048
     Dates: start: 19921201, end: 20020130
  3. PROMETRIUM [Suspect]
     Indication: MENOPAUSE
     Dosage: ORAL
     Route: 048
     Dates: start: 19990331, end: 20020130
  4. PROVERA [Suspect]
     Indication: MENOPAUSE
     Dosage: ORAL
     Route: 048
     Dates: start: 19921201, end: 19960219

REACTIONS (1)
  - BREAST CANCER [None]
